FAERS Safety Report 4685296-3 (Version None)
Quarter: 2005Q2

REPORT INFORMATION
  Report Type: 
  Country: None (occurrence: None)
  Receive Date: 20050608
  Receipt Date: 20050606
  Transmission Date: 20051028
  Serious: Yes (Death, Hospitalization)
  Sender: FDA-Public Use
  Company Number: PHRM2005FR01726

PATIENT
  Age: 62 Year
  Sex: Male

DRUGS (4)
  1. VOLTAREN [Suspect]
  2. PREVISCAN [Suspect]
     Route: 048
  3. CORVASAL [Concomitant]
     Route: 048
  4. AMLOR [Concomitant]
     Route: 048

REACTIONS (14)
  - CEREBRAL HAEMORRHAGE [None]
  - DEPRESSED LEVEL OF CONSCIOUSNESS [None]
  - DRUG INTERACTION [None]
  - EXTENSOR PLANTAR RESPONSE [None]
  - FAECAL INCONTINENCE [None]
  - GLASGOW COMA SCALE ABNORMAL [None]
  - HEMIPARESIS [None]
  - HYPERTENSION [None]
  - INTERNATIONAL NORMALISED RATIO INCREASED [None]
  - INTUBATION [None]
  - ISCHAEMIC STROKE [None]
  - LIFE SUPPORT [None]
  - MYDRIASIS [None]
  - PUPILS UNEQUAL [None]
